FAERS Safety Report 4334212-2 (Version None)
Quarter: 2004Q2

REPORT INFORMATION
  Report Type: 
  Country: None (occurrence: None)
  Receive Date: 20040402
  Receipt Date: 20040325
  Transmission Date: 20050107
  Serious: Yes (Hospitalization)
  Sender: FDA-Public Use
  Company Number: 2004202294FR

PATIENT
  Age: 77 Year
  Sex: Male

DRUGS (5)
  1. SOLU-MEDROL [Suspect]
     Dosage: 90 MG, QD, IV
     Route: 042
     Dates: start: 20031013, end: 20031018
  2. CYCLOPHOSPHAMIDE [Suspect]
     Indication: MANTLE CELL LYMPHOMA
     Dosage: 700 MG, QD, IV
     Route: 042
     Dates: start: 20031013, end: 20031013
  3. RANITIDINE [Suspect]
     Dosage: ORAL
     Route: 048
     Dates: start: 20000615, end: 20031122
  4. ETOPOSIDE [Suspect]
     Indication: MANTLE CELL LYMPHOMA
     Dosage: 160 MG, IV
     Route: 042
     Dates: start: 20031013, end: 20031013
  5. DOXORUBICIN HCL [Concomitant]

REACTIONS (4)
  - CONFUSIONAL STATE [None]
  - HALLUCINATION, VISUAL [None]
  - INFLAMMATION [None]
  - NERVOUS SYSTEM DISORDER [None]
